FAERS Safety Report 15386156 (Version 2)
Quarter: 2018Q4

REPORT INFORMATION
  Report Type: Report from Study
  Country: FR (occurrence: FR)
  Receive Date: 20180914
  Receipt Date: 20181224
  Transmission Date: 20190204
  Serious: Yes (Death, Disabling)
  Sender: FDA-Public Use
  Company Number: FR-ASTRAZENECA-2018SF16880

PATIENT
  Age: 21858 Day
  Sex: Male
  Weight: 67 kg

DRUGS (4)
  1. DURVALUMAB. [Suspect]
     Active Substance: DURVALUMAB
     Indication: NON-SMALL CELL LUNG CANCER STAGE IV
     Route: 042
  2. DURVALUMAB. [Suspect]
     Active Substance: DURVALUMAB
     Indication: NON-SMALL CELL LUNG CANCER STAGE IV
     Route: 042
     Dates: start: 20180622, end: 20180622
  3. KARDEGIC [Concomitant]
     Active Substance: ASPIRIN DL-LYSINE
     Indication: ANEURYSM
     Route: 048
  4. KEPPRA [Concomitant]
     Active Substance: LEVETIRACETAM
     Indication: EPILEPSY
     Route: 048

REACTIONS (1)
  - Encephalitis autoimmune [Fatal]

NARRATIVE: CASE EVENT DATE: 20180706
